FAERS Safety Report 5832802-9 (Version None)
Quarter: 2008Q3

REPORT INFORMATION
  Report Type: 
  Country: None (occurrence: None)
  Receive Date: 20080804
  Receipt Date: 20080724
  Transmission Date: 20090109
  Serious: Yes (Hospitalization)
  Sender: FDA-Public Use
  Company Number: JP-ROCHE-578063

PATIENT
  Sex: Female
  Weight: 52 kg

DRUGS (7)
  1. TAMIFLU [Suspect]
     Indication: INFLUENZA
     Route: 048
     Dates: start: 20080108, end: 20080108
  2. CRAVIT [Suspect]
     Indication: DRUG USE FOR UNKNOWN INDICATION
     Dosage: FORM ORAL FORMULATION (NOT OTHERWISE SPECIFIED)
     Route: 048
  3. ZITHROMAX [Concomitant]
     Dosage: FORM ORAL FORMULATION (NOT OTHERWISE SPECIFIED)
     Route: 048
     Dates: start: 20080108, end: 20080108
  4. ACETAMINOPHEN [Concomitant]
     Dosage: FORM ORAL FORMULATION (NOT OTHERWISE SPECIFIED), TAKEN AS NEEDED
     Route: 048
     Dates: start: 20080108, end: 20080108
  5. SELBEX [Concomitant]
     Dosage: FORM ORAL FORMULATION (NOT OTHERWISE SPECIFIED), TKANE AS NEEDED
     Route: 048
     Dates: start: 20080108, end: 20080108
  6. ASTOMIN [Concomitant]
     Dosage: FORM ORAL FORMULATION (NOT OTHERWISE SPECIFIED), TAKEN AS NEEDED
     Route: 048
     Dates: start: 20080108, end: 20080108
  7. MUCOSOLVAN [Concomitant]
     Dosage: FORM ORAL FORMULATION (NOT OTHERWISE SPECIFIED), TAKEN AS NEEDED
     Route: 048
     Dates: start: 20080108, end: 20080108

REACTIONS (1)
  - RHABDOMYOLYSIS [None]
